FAERS Safety Report 21734856 (Version 1)
Quarter: 2022Q4

REPORT INFORMATION
  Report Type: Report from Study
  Country: CA (occurrence: CA)
  Receive Date: 20221215
  Receipt Date: 20221215
  Transmission Date: 20230113
  Serious: Yes (Other)
  Sender: FDA-Public Use
  Company Number: CA-JNJFOC-20221219274

PATIENT
  Age: 12 Year
  Sex: Female
  Weight: 45 kg

DRUGS (1)
  1. REMICADE [Suspect]
     Active Substance: INFLIXIMAB
     Indication: Crohn^s disease
     Dosage: REMICADE 500 MG IV AT WEEK 2, 6 THEN FIRST MAINTENANCE DOSE AT WEEK 12 THEN EVERY 8 WEEKS.
     Route: 042
     Dates: start: 20221202

REACTIONS (4)
  - Anal abscess [Unknown]
  - Anal fistula [Unknown]
  - Off label use [Unknown]
  - Incorrect drug administration rate [Unknown]

NARRATIVE: CASE EVENT DATE: 20221201
